FAERS Safety Report 8974975 (Version 3)
Quarter: 2013Q2

REPORT INFORMATION
  Report Type: Spontaneous
  Country: JP (occurrence: JP)
  Receive Date: 20121219
  Receipt Date: 20130421
  Transmission Date: 20140414
  Serious: Yes (Other)
  Sender: FDA-Public Use
  Company Number: JP-UCBSA-073205

PATIENT
  Age: 41 Year
  Sex: Female
  Weight: 39 kg

DRUGS (11)
  1. E KEPPRA [Suspect]
     Indication: EPILEPSY
     Route: 048
     Dates: start: 20110321, end: 20110704
  2. E KEPPRA [Suspect]
     Indication: EPILEPSY
     Route: 048
     Dates: start: 20110705, end: 20110718
  3. E KEPPRA [Suspect]
     Indication: EPILEPSY
     Route: 048
     Dates: start: 20110719, end: 20110801
  4. E KEPPRA [Suspect]
     Indication: EPILEPSY
     Route: 048
     Dates: start: 20110802, end: 20120320
  5. E KEPPRA [Suspect]
     Indication: EPILEPSY
     Route: 048
     Dates: start: 20120321, end: 20120403
  6. HYSERENIN [Concomitant]
     Dosage: DAILY DOSE: 1100MG
     Route: 048
  7. CLONAZEPAM [Concomitant]
     Route: 048
  8. HYDANTOL [Concomitant]
     Dosage: 200 MG DAILY
     Route: 048
  9. PHENOBAL [Concomitant]
     Dosage: 70MG DAILY
     Route: 048
  10. PHENOBAL [Concomitant]
     Dosage: 40MG DAILY
     Route: 048
  11. LAMICTAL [Concomitant]
     Route: 048
     Dates: start: 20110321, end: 20110419

REACTIONS (2)
  - Intentional self-injury [Recovered/Resolved]
  - Lower limb fracture [Recovered/Resolved]
